FAERS Safety Report 6623431-8 (Version None)
Quarter: 2010Q1

REPORT INFORMATION
  Report Type: 
  Country: None (occurrence: None)
  Receive Date: 20100304
  Receipt Date: 20100129
  Transmission Date: 20100710
  Serious: Yes (Death)
  Sender: FDA-Public Use
  Company Number: 517624

PATIENT
  Age: 59 Year
  Sex: Female
  Weight: 69 kg

DRUGS (6)
  1. OXALIPLATIN [Suspect]
     Indication: COLON CANCER
     Dates: start: 20100104, end: 20100106
  2. XELODA [Suspect]
     Indication: COLON CANCER
     Dates: start: 20100104, end: 20100106
  3. AVASTIN [Suspect]
     Indication: COLON CANCER
     Dosage: INTRAVENOUS
     Route: 042
     Dates: start: 20100104, end: 20100106
  4. (METOPROLOL) [Concomitant]
  5. AMLODIPINE [Concomitant]
  6. (CORODIL /00574901/) [Concomitant]

REACTIONS (2)
  - CARDIAC ARREST [None]
  - SUDDEN DEATH [None]
